FAERS Safety Report 13144179 (Version 2)
Quarter: 2019Q1

REPORT INFORMATION
  Report Type: Report from Study
  Country: DE (occurrence: DE)
  Receive Date: 20170124
  Receipt Date: 20190121
  Transmission Date: 20190417
  Serious: Yes (Other)
  Sender: FDA-Public Use
  Company Number: PHHY2017DE009639

PATIENT
  Sex: Male

DRUGS (9)
  1. GILENYA [Suspect]
     Active Substance: FINGOLIMOD HYDROCHLORIDE
     Indication: MULTIPLE SCLEROSIS
     Dosage: 0.5 MG, QD
     Route: 048
     Dates: start: 20110503
  2. SUMATRIPTAN. [Concomitant]
     Active Substance: SUMATRIPTAN
     Indication: HEADACHE
     Dosage: 50 MG, PRN
     Route: 048
     Dates: start: 20140702
  3. CITALOPRAM [Concomitant]
     Active Substance: CITALOPRAM HYDROBROMIDE
     Indication: STRESS
  4. METAMIZOLE [Concomitant]
     Active Substance: METAMIZOLE
     Indication: HEADACHE
     Dosage: 500 MG, PRN
     Route: 048
     Dates: start: 20140505
  5. CIPRALEX [Concomitant]
     Active Substance: ESCITALOPRAM OXALATE
     Indication: ADJUSTMENT DISORDER
     Dosage: 20 MG, QD
     Route: 048
     Dates: start: 20110323, end: 20110809
  6. TRAMADOL. [Concomitant]
     Active Substance: TRAMADOL
     Indication: CERVICOBRACHIAL SYNDROME
     Dosage: 100 MG, BID
     Route: 048
     Dates: start: 20110307, end: 20110407
  7. CIPRALEX [Concomitant]
     Active Substance: ESCITALOPRAM OXALATE
     Indication: STRESS
  8. IBUTAD [Concomitant]
     Indication: CERVICOBRACHIAL SYNDROME
     Dosage: 1200 MG, BID
     Route: 048
     Dates: start: 20110516
  9. CITALOPRAM [Concomitant]
     Active Substance: CITALOPRAM HYDROBROMIDE
     Indication: ADJUSTMENT DISORDER
     Dosage: 40 MG, QD
     Route: 048
     Dates: start: 20110810

REACTIONS (1)
  - Thrombocytopenia [Recovered/Resolved]

NARRATIVE: CASE EVENT DATE: 20161006
